FAERS Safety Report 6688694-1 (Version None)
Quarter: 2010Q2

REPORT INFORMATION
  Report Type: 
  Country: None (occurrence: None)
  Receive Date: 20100420
  Receipt Date: 20100419
  Transmission Date: 20101027
  Serious: Yes (Hospitalization)
  Sender: FDA-Public Use
  Company Number: A0818014A

PATIENT
  Sex: Male
  Weight: 168.2 kg

DRUGS (1)
  1. AVANDIA [Suspect]
     Route: 048
     Dates: start: 20000101, end: 20040101

REACTIONS (2)
  - BALANCE DISORDER [None]
  - CEREBROVASCULAR ACCIDENT [None]
